FAERS Safety Report 10327808 (Version 2)
Quarter: 2014Q3

REPORT INFORMATION
  Report Type: Spontaneous
  Country: US (occurrence: US)
  Receive Date: 20140721
  Receipt Date: 20140724
  Transmission Date: 20150326
  Serious: Yes (Death, Other)
  Sender: FDA-Public Use
  Company Number: US-MERCK-1407USA007448

PATIENT
  Age: 61 Year
  Sex: Female

DRUGS (1)
  1. NOXAFIL [Suspect]
     Active Substance: POSACONAZOLE
     Dosage: 5 ML, TID
     Route: 048
     Dates: start: 201308

REACTIONS (1)
  - Leukaemia recurrent [Fatal]

NARRATIVE: CASE EVENT DATE: 20140316
